FAERS Safety Report 15803006 (Version 1)
Quarter: 2019Q1

REPORT INFORMATION
  Report Type: Spontaneous
  Country: US (occurrence: US)
  Receive Date: 20190109
  Receipt Date: 20190109
  Transmission Date: 20190417
  Serious: Yes (Death, Hospitalization)
  Sender: FDA-Public Use
  Company Number: US-PFIZER INC-2019006865

PATIENT
  Age: 42 Year
  Sex: Female

DRUGS (10)
  1. GABAPENTIN. [Suspect]
     Active Substance: GABAPENTIN
     Dosage: UNK
     Route: 048
  2. ACETYLSALICYLIC ACID [Suspect]
     Active Substance: ASPIRIN
     Dosage: UNK
     Route: 048
  3. AMLODIPINE BESILATE [Suspect]
     Active Substance: AMLODIPINE BESYLATE
     Dosage: UNK
     Route: 048
  4. GABAPENTIN. [Suspect]
     Active Substance: GABAPENTIN
     Dosage: UNK (ASPIRATION (WITH INGESTION)
     Route: 055
  5. METHADONE [Suspect]
     Active Substance: METHADONE HYDROCHLORIDE
     Dosage: UNK
     Route: 048
  6. BUPROPION. [Suspect]
     Active Substance: BUPROPION
     Dosage: UNK (ASPIRATION (WITH INGESTION)
     Route: 055
  7. ACETYLSALICYLIC ACID [Suspect]
     Active Substance: ASPIRIN
     Dosage: UNK (ASPIRATION (WITH INGESTION)
     Route: 055
  8. AMLODIPINE BESILATE [Suspect]
     Active Substance: AMLODIPINE BESYLATE
     Dosage: UNK (ASPIRATION (WITH INGESTION)
     Route: 055
  9. BUPROPION. [Suspect]
     Active Substance: BUPROPION
     Dosage: UNK
     Route: 048
  10. METHADONE [Suspect]
     Active Substance: METHADONE HYDROCHLORIDE
     Dosage: UNK (ASPIRATION (WITH INGESTION)
     Route: 055

REACTIONS (3)
  - Completed suicide [Fatal]
  - Cardiac arrest [Fatal]
  - Respiratory arrest [Fatal]

NARRATIVE: CASE EVENT DATE: 2017
